FAERS Safety Report 6577874-1 (Version None)
Quarter: 2010Q1

REPORT INFORMATION
  Report Type: 
  Country: None (occurrence: None)
  Receive Date: 20100211
  Receipt Date: 20100202
  Transmission Date: 20100710
  Serious: Yes (Death, Life-Threatening)
  Sender: FDA-Public Use
  Company Number: FR-PFIZER INC-2010014189

PATIENT
  Age: 55 Year
  Sex: Male

DRUGS (6)
  1. AMLOR [Suspect]
     Indication: HYPERTENSION
     Dosage: 5 MG, UNK
     Route: 048
     Dates: end: 20080816
  2. RIFATER [Suspect]
     Dosage: 6 DF, DAILY
     Route: 048
     Dates: start: 20080625, end: 20080816
  3. MYAMBUTOL [Suspect]
     Dosage: 3 DF, DAILY
     Route: 048
     Dates: start: 20080625, end: 20080816
  4. ALLOPURINOL [Suspect]
     Dosage: UNK
     Route: 048
     Dates: end: 20080816
  5. HALDOL [Suspect]
     Indication: DELIRIUM
     Dosage: UNK
     Route: 048
     Dates: end: 20080816
  6. LEPTICUR [Concomitant]

REACTIONS (1)
  - DRUG RASH WITH EOSINOPHILIA AND SYSTEMIC SYMPTOMS [None]
